FAERS Safety Report 8732156 (Version 4)
Quarter: 2013Q3

REPORT INFORMATION
  Report Type: Report from Study
  Country: JP (occurrence: JP)
  Receive Date: 20120820
  Receipt Date: 20130817
  Transmission Date: 20140515
  Serious: Yes (Death, Life-Threatening, Other)
  Sender: FDA-Public Use
  Company Number: JP-CELGENEUS-087-50794-12021708

PATIENT
  Age: 77 Year
  Sex: Female
  Weight: 42 kg

DRUGS (26)
  1. VIDAZA [Suspect]
     Indication: MYELODYSPLASTIC SYNDROME
     Dosage: 75 MILLIGRAM/SQ. METER
     Route: 041
     Dates: start: 20110728, end: 20110803
  2. VIDAZA [Suspect]
     Dosage: 25 MILLIGRAM/SQ. METER
     Route: 041
     Dates: start: 20111103, end: 20111109
  3. VIDAZA [Suspect]
     Dosage: 25 MILLIGRAM/SQ. METER
     Route: 041
     Dates: start: 20111217, end: 20111223
  4. VIDAZA [Suspect]
     Dosage: 25 MILLIGRAM/SQ. METER
     Route: 041
     Dates: start: 20120220, end: 20120226
  5. VIDAZA [Suspect]
     Dosage: 25 MILLIGRAM/SQ. METER
     Route: 041
     Dates: start: 20120612, end: 20120618
  6. TAKEPRON [Concomitant]
     Indication: PRODUCT USED FOR UNKNOWN INDICATION
     Route: 065
     Dates: end: 20120721
  7. BAYASPIRIN [Concomitant]
     Indication: PRODUCT USED FOR UNKNOWN INDICATION
     Route: 065
     Dates: end: 20120516
  8. PANALDINE [Concomitant]
     Indication: PRODUCT USED FOR UNKNOWN INDICATION
     Route: 065
     Dates: end: 20110926
  9. GASMOTIN [Concomitant]
     Indication: PRODUCT USED FOR UNKNOWN INDICATION
     Route: 065
  10. GASMOTIN [Concomitant]
     Route: 065
     Dates: end: 20120721
  11. MAGLAX [Concomitant]
     Indication: PRODUCT USED FOR UNKNOWN INDICATION
     Route: 065
     Dates: end: 20120721
  12. ITRIZOLE [Concomitant]
     Indication: PRODUCT USED FOR UNKNOWN INDICATION
     Route: 065
     Dates: start: 20110812, end: 20111114
  13. ITRIZOLE [Concomitant]
     Route: 065
     Dates: start: 20120105, end: 20120306
  14. POLYMIXIN B SULFATE [Concomitant]
     Indication: PRODUCT USED FOR UNKNOWN INDICATION
     Route: 065
     Dates: start: 20110916
  15. CRAVIT [Concomitant]
     Indication: PRODUCT USED FOR UNKNOWN INDICATION
     Route: 065
     Dates: start: 20110812, end: 20110915
  16. VFEND [Concomitant]
     Indication: PRODUCT USED FOR UNKNOWN INDICATION
     Route: 065
     Dates: start: 20111117, end: 20120104
  17. VFEND [Concomitant]
     Route: 065
     Dates: start: 20111114, end: 20111118
  18. VFEND [Concomitant]
     Route: 065
     Dates: end: 20120721
  19. SEROTONE [Concomitant]
     Indication: PRODUCT USED FOR UNKNOWN INDICATION
     Route: 065
     Dates: start: 20110728, end: 20110803
  20. SEROTONE [Concomitant]
     Route: 065
     Dates: start: 20111103, end: 20111109
  21. FIRSTCIN [Concomitant]
     Indication: PRODUCT USED FOR UNKNOWN INDICATION
     Route: 065
     Dates: start: 20111114, end: 20111124
  22. ALLELOCK [Concomitant]
     Indication: PRODUCT USED FOR UNKNOWN INDICATION
     Route: 065
     Dates: end: 20120721
  23. GASCON [Concomitant]
     Indication: PRODUCT USED FOR UNKNOWN INDICATION
     Route: 065
     Dates: end: 20120721
  24. HANP [Concomitant]
     Indication: PRODUCT USED FOR UNKNOWN INDICATION
     Route: 065
     Dates: end: 20120721
  25. MORPHINE HYDROCHLORIDE HYDRATE [Concomitant]
     Indication: PRODUCT USED FOR UNKNOWN INDICATION
     Route: 065
     Dates: start: 20120719, end: 20120721
  26. BACTRAMIN [Concomitant]
     Indication: PRODUCT USED FOR UNKNOWN INDICATION
     Route: 065
     Dates: start: 20120719, end: 20120721

REACTIONS (8)
  - Pneumonia [Fatal]
  - Platelet count decreased [Not Recovered/Not Resolved]
  - White blood cell count decreased [Not Recovered/Not Resolved]
  - Neutrophil count decreased [Not Recovered/Not Resolved]
  - Pneumonia [Recovered/Resolved]
  - Red blood cell count decreased [Not Recovered/Not Resolved]
  - Haemoglobin decreased [Not Recovered/Not Resolved]
  - Pneumonia [Recovered/Resolved]
